FAERS Safety Report 8071300-1 (Version None)
Quarter: 2012Q1

REPORT INFORMATION
  Report Type: 
  Country: None (occurrence: None)
  Receive Date: 20120125
  Receipt Date: 20120117
  Transmission Date: 20120608
  Serious: Yes (Other)
  Sender: FDA-Public Use
  Company Number: PHHY2012GB004795

PATIENT
  Age: 52 Year

DRUGS (3)
  1. CARBOPLATIN [Suspect]
  2. PACLITAXEL [Suspect]
     Indication: OVARIAN EPITHELIAL CANCER
     Dosage: 175 MG/M2, UNK
     Dates: start: 20080601, end: 20080801
  3. PACLITAXEL [Suspect]
     Dosage: 20 MG/M2/WEEK

REACTIONS (3)
  - NEUROPATHY PERIPHERAL [None]
  - ARTHRALGIA [None]
  - NEOPLASM MALIGNANT [None]
